FAERS Safety Report 8822327 (Version 2)
Quarter: 2012Q4

REPORT INFORMATION
  Report Type: 
  Country: US (occurrence: US)
  Receive Date: 20121003
  Receipt Date: 20121121
  Transmission Date: 20130627
  Serious: Yes (Hospitalization)
  Sender: FDA-Public Use
  Company Number: US-009507513-1209USA008491

PATIENT
  Age: 65 Year
  Sex: Female

DRUGS (1)
  1. FOSAMAX [Suspect]
     Indication: OSTEOPOROSIS
     Dosage: 1 DF, qw
     Route: 048
     Dates: start: 1996, end: 20120918

REACTIONS (1)
  - Femur fracture [Not Recovered/Not Resolved]
